FAERS Safety Report 20732579 (Version 5)
Quarter: 2022Q2

REPORT INFORMATION
  Report Type: Spontaneous
  Country: US (occurrence: US)
  Receive Date: 20220420
  Receipt Date: 20220623
  Transmission Date: 20220720
  Serious: No
  Sender: FDA-Public Use
  Company Number: US-PFIZER INC-202200186041

PATIENT
  Age: 93 Year
  Sex: Female

DRUGS (5)
  1. IBRANCE [Suspect]
     Active Substance: PALBOCICLIB
     Indication: Breast cancer metastatic
     Dosage: 125 MG, DAILY
     Route: 048
     Dates: start: 20220112
  2. IBRANCE [Suspect]
     Active Substance: PALBOCICLIB
     Dosage: 125 MG
     Route: 048
     Dates: start: 20220122
  3. IBRANCE [Suspect]
     Active Substance: PALBOCICLIB
     Dosage: 125 MG
     Route: 048
     Dates: start: 20220127
  4. IBRANCE [Suspect]
     Active Substance: PALBOCICLIB
     Dosage: UNK (IBRANCE OFF WEEK WAS EXTENDED AND EXTRA 2)
     Route: 048
     Dates: start: 20220415
  5. IBRANCE [Suspect]
     Active Substance: PALBOCICLIB
     Dosage: 125 MG (28 DAY SUPPLY)
     Route: 048

REACTIONS (6)
  - Oral herpes [Unknown]
  - Diarrhoea [Recovering/Resolving]
  - Rash [Unknown]
  - White blood cell count decreased [Unknown]
  - Alopecia [Unknown]
  - Product use issue [Unknown]

NARRATIVE: CASE EVENT DATE: 20220127
